FAERS Safety Report 24905603 (Version 1)
Quarter: 2025Q1

REPORT INFORMATION
  Report Type: Report from Study
  Country: US (occurrence: US)
  Receive Date: 20250130
  Receipt Date: 20250130
  Transmission Date: 20250408
  Serious: No
  Sender: HRA PHARMA
  Company Number: US-ORG100014127-2024000099

PATIENT
  Age: 56 Year
  Sex: Female

DRUGS (10)
  1. METOPIRONE [Suspect]
     Active Substance: METYRAPONE
     Indication: Adrenal gland cancer
     Dates: start: 20240408
  2. METOPIRONE [Suspect]
     Active Substance: METYRAPONE
     Indication: Adrenal gland cancer
     Dosage: 250 MG; 2 CAPSULES THREE TIMES DAILY
     Route: 048
  3. LYSODREN [Concomitant]
     Active Substance: MITOTANE
     Indication: Adrenal gland cancer
     Dosage: 02 TABLETS THREE TIMES DAILY
     Route: 048
     Dates: start: 20240214
  4. Albuterol hfa aerosol [Concomitant]
     Indication: Product used for unknown indication
  5. Bicalutamide tablets 50mg [Concomitant]
     Indication: Product used for unknown indication
  6. Enoxaparin inj 40/0.4ml [Concomitant]
     Indication: Product used for unknown indication
  7. Isturisa tablet 1mg [Concomitant]
     Indication: Product used for unknown indication
  8. lidocaine/prilocaine cream 2.5-2.5% [Concomitant]
     Indication: Product used for unknown indication
  9. Ondansetron tablet 8mg [Concomitant]
     Indication: Product used for unknown indication
  10. Prochlorperazine tablet 10mg [Concomitant]
     Indication: Product used for unknown indication

REACTIONS (1)
  - Off label use [Recovered/Resolved]

NARRATIVE: CASE EVENT DATE: 20240401
